FAERS Safety Report 25961949 (Version 1)
Quarter: 2025Q4

REPORT INFORMATION
  Report Type: Spontaneous
  Country: EU (occurrence: EU)
  Receive Date: 20251027
  Receipt Date: 20251027
  Transmission Date: 20260117
  Serious: Yes (Other)
  Sender: BRISTOL-MYERS SQUIBB COMPANY
  Company Number: EU-IPSEN Group, Research and Development-2025-25842

PATIENT
  Age: 64 Year

DRUGS (2)
  1. NIVOLUMAB [Suspect]
     Active Substance: NIVOLUMAB
     Indication: Renal cell carcinoma
     Dosage: 240 MG IV Q14
     Route: 042
     Dates: start: 20230616
  2. CABOZANTINIB [Suspect]
     Active Substance: CABOZANTINIB
     Indication: Renal cell carcinoma
     Dosage: 40 MG/DAY PER OS
     Route: 048
     Dates: start: 20230616, end: 202506

REACTIONS (2)
  - Gastrointestinal toxicity [Unknown]
  - Hypertension [Unknown]

NARRATIVE: CASE EVENT DATE: 20240601
